FAERS Safety Report 9907631 (Version 1)
Quarter: 2014Q1

REPORT INFORMATION
  Report Type: Spontaneous
  Country: US (occurrence: US)
  Receive Date: 20140219
  Receipt Date: 20140219
  Transmission Date: 20141002
  Serious: Yes (Other)
  Sender: FDA-Public Use
  Company Number: US-BEH-2014040764

PATIENT
  Age: 26 Year
  Sex: Male

DRUGS (2)
  1. IVIG [Suspect]
     Indication: CELL-MEDIATED IMMUNE DEFICIENCY
  2. IVIG [Suspect]
     Indication: RESPIRATORY TRACT INFECTION

REACTIONS (6)
  - Haemolytic anaemia [Unknown]
  - Anaemia [Unknown]
  - Blood lactate dehydrogenase increased [Unknown]
  - Haptoglobin decreased [Unknown]
  - Reticulocyte count decreased [Unknown]
  - Aplasia pure red cell [Unknown]
